FAERS Safety Report 6900261-0 (Version None)
Quarter: 2010Q3

REPORT INFORMATION
  Report Type: 
  Country: None (occurrence: None)
  Receive Date: 20100803
  Receipt Date: 20100723
  Transmission Date: 20110219
  Serious: Yes (Hospitalization)
  Sender: FDA-Public Use
  Company Number: JP-ROCHE-717939

PATIENT
  Sex: Female

DRUGS (13)
  1. TOCILIZUMAB [Suspect]
     Indication: RHEUMATOID ARTHRITIS
     Route: 041
     Dates: start: 20091020, end: 20091020
  2. TOCILIZUMAB [Suspect]
     Route: 041
     Dates: start: 20091117, end: 20091117
  3. TOCILIZUMAB [Suspect]
     Route: 041
     Dates: start: 20091218, end: 20091218
  4. TOCILIZUMAB [Suspect]
     Route: 041
     Dates: start: 20100115, end: 20100115
  5. TOCILIZUMAB [Suspect]
     Route: 041
     Dates: start: 20100217, end: 20100217
  6. TOCILIZUMAB [Suspect]
     Route: 041
     Dates: start: 20100323, end: 20100323
  7. TOCILIZUMAB [Suspect]
     Route: 041
     Dates: start: 20100421, end: 20100421
  8. TOCILIZUMAB [Suspect]
     Route: 041
     Dates: start: 20100519, end: 20100519
  9. TOCILIZUMAB [Suspect]
     Route: 041
     Dates: start: 20100623, end: 20100623
  10. RHEUMATREX [Concomitant]
     Route: 048
  11. ADRENOCORTICAL HORMONE [Concomitant]
     Route: 065
  12. FOLIAMIN [Concomitant]
     Dosage: FORRM: PREORAL AGENT
     Route: 048
  13. CLINORIL [Concomitant]
     Route: 048

REACTIONS (2)
  - HEPATIC FUNCTION ABNORMAL [None]
  - HISTIOCYTOSIS HAEMATOPHAGIC [None]
